FAERS Safety Report 8096297-X (Version None)
Quarter: 2012Q1

REPORT INFORMATION
  Report Type: 
  Country: None (occurrence: None)
  Receive Date: 20120129
  Receipt Date: 20111230
  Transmission Date: 20120608
  Serious: No
  Sender: FDA-Public Use
  Company Number: US-ABBOTT-12P-163-0888758-00

PATIENT
  Sex: Female
  Weight: 90.346 kg

DRUGS (5)
  1. HUMIRA [Suspect]
     Indication: PSORIATIC ARTHROPATHY
  2. MELOXICAM [Concomitant]
     Indication: PAIN
  3. VITAMIN E [Concomitant]
     Indication: VITAMIN SUPPLEMENTATION
  4. CALCIUM GLUCONATE [Concomitant]
     Indication: MINERAL SUPPLEMENTATION
  5. HUMIRA [Suspect]
     Indication: PSORIASIS
     Route: 058
     Dates: start: 20110801

REACTIONS (3)
  - ARTHRALGIA [None]
  - GAIT DISTURBANCE [None]
  - INJECTION SITE PAIN [None]
